FAERS Safety Report 8287321-X (Version None)
Quarter: 2012Q2

REPORT INFORMATION
  Report Type: 
  Country: None (occurrence: None)
  Receive Date: 20120416
  Receipt Date: 20120416
  Transmission Date: 20120825
  Serious: Yes (Hospitalization)
  Sender: FDA-Public Use
  Company Number: None

PATIENT
  Age: 5 Year
  Sex: Male
  Weight: 15.875 kg

DRUGS (2)
  1. SINGULAIR [Suspect]
     Indication: MULTIPLE ALLERGIES
     Dosage: 1 TABLET AT NIGHT
     Route: 048
     Dates: start: 20120301, end: 20120320
  2. SINGULAIR [Suspect]
     Indication: COUGH
     Dosage: 1 TABLET AT NIGHT
     Route: 048
     Dates: start: 20120301, end: 20120320

REACTIONS (8)
  - MOVEMENT DISORDER [None]
  - ONYCHOPHAGIA [None]
  - EXCESSIVE EYE BLINKING [None]
  - ABNORMAL DREAMS [None]
  - RASH [None]
  - TIC [None]
  - MUSCLE TWITCHING [None]
  - TOURETTE'S DISORDER [None]
